FAERS Safety Report 5822775-7 (Version None)
Quarter: 2008Q3

REPORT INFORMATION
  Report Type: 
  Country: None (occurrence: None)
  Receive Date: 20080725
  Receipt Date: 20071008
  Transmission Date: 20090109
  Serious: No
  Sender: FDA-Public Use
  Company Number: US-AMGEN-KDL247650

PATIENT
  Sex: Female
  Weight: 82.6 kg

DRUGS (10)
  1. PROCRIT [Suspect]
     Indication: ANAEMIA
     Dates: start: 20070701
  2. ACTOS [Suspect]
  3. METFORMIN HYDROCHLORIDE [Suspect]
  4. HUMULIN 70/30 [Suspect]
  5. OMEPRAZOLE [Concomitant]
     Dates: start: 20070201
  6. AMLODIPINE [Concomitant]
  7. FUROSEMIDE [Concomitant]
  8. PLAVIX [Concomitant]
     Dates: start: 19980101
  9. LIPITOR [Concomitant]
     Dates: start: 19980101
  10. PREMARIN [Concomitant]

REACTIONS (1)
  - GLOSSODYNIA [None]
